FAERS Safety Report 4662354-0 (Version None)
Quarter: 2005Q2

REPORT INFORMATION
  Report Type: 
  Country: None (occurrence: None)
  Receive Date: 20050516
  Receipt Date: 20050503
  Transmission Date: 20051028
  Serious: Yes (Other)
  Sender: FDA-Public Use
  Company Number: US-JNJFOC-20050302503

PATIENT
  Age: 39 Year
  Sex: Female
  Weight: 53.07 kg

DRUGS (2)
  1. ORTHO TRI-CYCLEN [Suspect]
     Route: 049
  2. ORTHO TRI-CYCLEN [Suspect]
     Indication: CONTRACEPTION
     Route: 049

REACTIONS (2)
  - MITRAL VALVE INCOMPETENCE [None]
  - VENTRICULAR EXTRASYSTOLES [None]
